FAERS Safety Report 9729801 (Version 3)
Quarter: 2015Q3

REPORT INFORMATION
  Report Type: Spontaneous
  Country: US (occurrence: US)
  Receive Date: 20131204
  Receipt Date: 20150804
  Transmission Date: 20151125
  Serious: No
  Sender: FDA-Public Use
  Company Number: US-GILEAD-2009-0021897

PATIENT
  Age: 85 Year
  Sex: Male
  Weight: 74.84 kg

DRUGS (14)
  1. ASPIRIN. [Concomitant]
     Active Substance: ASPIRIN
  2. REVATIO [Concomitant]
     Active Substance: SILDENAFIL CITRATE
     Indication: PULMONARY ARTERIAL HYPERTENSION
     Dates: start: 20080530
  3. PLAVIX [Concomitant]
     Active Substance: CLOPIDOGREL BISULFATE
  4. LETAIRIS [Suspect]
     Active Substance: AMBRISENTAN
     Indication: PULMONARY ARTERIAL HYPERTENSION
     Route: 048
     Dates: start: 20081117
  5. LUMIGAN [Concomitant]
     Active Substance: BIMATOPROST
  6. ACETYLCYSTEINE 20% [Concomitant]
  7. GLYBURIDE. [Concomitant]
     Active Substance: GLYBURIDE
  8. ONE A DAY [Concomitant]
  9. HCTZ [Concomitant]
     Active Substance: HYDROCHLOROTHIAZIDE
  10. VITAMIN C [Concomitant]
     Active Substance: ASCORBIC ACID
  11. DOXAZOSIN MESYLATE. [Concomitant]
     Active Substance: DOXAZOSIN MESYLATE
  12. CRESTOR [Concomitant]
     Active Substance: ROSUVASTATIN CALCIUM
  13. CITRACAL [Concomitant]
     Active Substance: CALCIUM CITRATE
  14. PREDNISONE. [Concomitant]
     Active Substance: PREDNISONE

REACTIONS (2)
  - Haematochezia [Unknown]
  - Anaemia [Unknown]
